APPROVED DRUG PRODUCT: CONCERTA
Active Ingredient: METHYLPHENIDATE HYDROCHLORIDE
Strength: 27MG
Dosage Form/Route: TABLET, EXTENDED RELEASE;ORAL
Application: N021121 | Product #004 | TE Code: AB
Applicant: JANSSEN PHARMACEUTICALS INC
Approved: Apr 1, 2002 | RLD: Yes | RS: No | Type: RX